FAERS Safety Report 12223554 (Version 1)
Quarter: 2016Q1

REPORT INFORMATION
  Report Type: Spontaneous
  Country: None (occurrence: US)
  Receive Date: 20160330
  Receipt Date: 20160330
  Transmission Date: 20160526
  Serious: Yes (Hospitalization)
  Sender: FDA-Public Use
  Company Number: US-MERZ NORTH AMERICA, INC.-16MRZ-00209

PATIENT
  Sex: Male

DRUGS (1)
  1. CUVPOSA [Suspect]
     Active Substance: GLYCOPYRROLATE
     Indication: CEREBRAL PALSY
     Dosage: 5ML BY MOUTH 3 TIMES DAILY
     Dates: start: 20131026

REACTIONS (1)
  - Pneumonia [None]
